FAERS Safety Report 12616581 (Version 1)
Quarter: 2016Q3

REPORT INFORMATION
  Report Type: Spontaneous
  Country: US (occurrence: US)
  Receive Date: 20160802
  Receipt Date: 20160802
  Transmission Date: 20161109
  Serious: No
  Sender: FDA-Public Use
  Company Number: US-IMPAX LABORATORIES, INC-2016-IPXL-00554

PATIENT
  Age: 57 Year
  Sex: Female

DRUGS (4)
  1. ALBENZA [Suspect]
     Active Substance: ALBENDAZOLE
     Dosage: 200 MG, 1 TABLET
     Route: 048
     Dates: start: 20160430
  2. ALBENZA [Suspect]
     Active Substance: ALBENDAZOLE
     Indication: ENTEROBIASIS
     Dosage: 200 MG, 1 TABLET
     Route: 048
  3. ALBENZA [Suspect]
     Active Substance: ALBENDAZOLE
     Dosage: 200 MG, 1 TABLET
     Route: 048
     Dates: start: 20160512
  4. ALBENZA [Suspect]
     Active Substance: ALBENDAZOLE
     Dosage: 200 MG, 1 TABLET
     Route: 048
     Dates: start: 20160416

REACTIONS (1)
  - Product use issue [Unknown]
